FAERS Safety Report 14803856 (Version 2)
Quarter: 2019Q2

REPORT INFORMATION
  Report Type: Spontaneous
  Country: US (occurrence: US)
  Receive Date: 20180425
  Receipt Date: 20190529
  Transmission Date: 20190711
  Serious: Yes (Other)
  Sender: FDA-Public Use
  Company Number: US-BRISTOL-MYERS SQUIBB COMPANY-BMS-2018-038148

PATIENT
  Age: 63 Year
  Sex: Female

DRUGS (1)
  1. SPRYCEL [Suspect]
     Active Substance: DASATINIB
     Indication: CHRONIC MYELOID LEUKAEMIA
     Dosage: ONCE DAILY
     Route: 048
     Dates: start: 20180202

REACTIONS (4)
  - Diarrhoea [Unknown]
  - Nausea [Unknown]
  - Cardiac disorder [Unknown]
  - Vomiting [Unknown]

NARRATIVE: CASE EVENT DATE: 20180202
